FAERS Safety Report 6815705-2 (Version None)
Quarter: 2010Q3

REPORT INFORMATION
  Report Type: 
  Country: None (occurrence: None)
  Receive Date: 20100702
  Receipt Date: 20100622
  Transmission Date: 20110219
  Serious: Yes (Hospitalization)
  Sender: FDA-Public Use
  Company Number: US-AMGEN-KDC417652

PATIENT
  Age: 28 Year

DRUGS (1)
  1. NEUPOGEN [Suspect]
     Indication: PERIPHERAL BLOOD STEM CELL APHERESIS
     Dates: start: 20091023, end: 20091027

REACTIONS (2)
  - ABDOMINAL PAIN UPPER [None]
  - SPLENIC HAEMORRHAGE [None]
